FAERS Safety Report 4313129-3 (Version None)
Quarter: 2004Q1

REPORT INFORMATION
  Report Type: 
  Country: None (occurrence: None)
  Receive Date: 20040304
  Receipt Date: 20040218
  Transmission Date: 20041129
  Serious: Yes (Hospitalization)
  Sender: FDA-Public Use
  Company Number: DE_040212933

PATIENT
  Sex: Female

DRUGS (2)
  1. XIGRIS [Suspect]
     Indication: SEPTIC SHOCK
     Dates: start: 20040101, end: 20040101
  2. MARCUMAR [Concomitant]

REACTIONS (4)
  - EPISTAXIS [None]
  - MUCOSAL HAEMORRHAGE [None]
  - PHARYNGEAL HAEMORRHAGE [None]
  - THROMBOCYTOPENIA [None]
